FAERS Safety Report 18546067 (Version 1)
Quarter: 2020Q4

REPORT INFORMATION
  Report Type: Spontaneous
  Country: US (occurrence: US)
  Receive Date: 20201125
  Receipt Date: 20201125
  Transmission Date: 20210114
  Serious: Yes (Other)
  Sender: FDA-Public Use
  Company Number: US-PURDUE-USA-2020-0175827

PATIENT
  Sex: Male

DRUGS (5)
  1. SOMA [Suspect]
     Active Substance: CARISOPRODOL
     Indication: PAIN MANAGEMENT
     Dosage: 2 MG, MONTHLY, 90 TABS
     Route: 048
     Dates: start: 2000
  2. MORPHINE SULFATE EXTENDED-RELEASE TABLETS (RHODES 74-769, 74-862) [Suspect]
     Active Substance: MORPHINE SULFATE
     Indication: PAIN MANAGEMENT
     Dosage: 30 MG, 60 TABS
     Route: 048
     Dates: start: 2000
  3. OXYCONTIN [Suspect]
     Active Substance: OXYCODONE HYDROCHLORIDE
     Indication: PAIN MANAGEMENT
     Dosage: 80 MG, (120 TABS)
     Route: 048
     Dates: start: 2000
  4. XANAX [Suspect]
     Active Substance: ALPRAZOLAM
     Indication: PAIN MANAGEMENT
     Dosage: 2 MG, 90 TABS
     Route: 048
     Dates: start: 2000
  5. ROXICODONE [Suspect]
     Active Substance: OXYCODONE HYDROCHLORIDE
     Indication: PAIN MANAGEMENT
     Dosage: 30 MG, (180 TABS)
     Route: 048
     Dates: start: 2000

REACTIONS (12)
  - Diabetes mellitus [Unknown]
  - Cold sweat [Unknown]
  - Illness [Unknown]
  - Drug dependence [Unknown]
  - Pain [Unknown]
  - Diarrhoea [Unknown]
  - Chills [Unknown]
  - Insomnia [Unknown]
  - Pancreatitis [Unknown]
  - Drug withdrawal syndrome [Unknown]
  - Vomiting [Unknown]
  - Restless legs syndrome [Unknown]
